FAERS Safety Report 7649137-4 (Version None)
Quarter: 2011Q3

REPORT INFORMATION
  Report Type: 
  Country: None (occurrence: None)
  Receive Date: 20110802
  Receipt Date: 20110725
  Transmission Date: 20111222
  Serious: Yes (Hospitalization, Other)
  Sender: FDA-Public Use
  Company Number: IE-JNJFOC-20110311490

PATIENT
  Sex: Male

DRUGS (7)
  1. MIRTAZAPINE [Concomitant]
     Indication: PRODUCT USED FOR UNKNOWN INDICATION
     Route: 065
  2. SERTRALINE HYDROCHLORIDE [Concomitant]
     Dosage: 150-200MG A DAY
     Route: 065
     Dates: start: 20070101
  3. RISPERDAL [Suspect]
     Indication: MAJOR DEPRESSION
     Route: 048
     Dates: start: 20060101
  4. RISPERDAL [Suspect]
     Route: 048
     Dates: start: 20080101
  5. RISPERDAL [Suspect]
     Route: 048
     Dates: start: 20080101
  6. MIRTAZAPINE [Concomitant]
     Route: 065
  7. SERTRALINE HYDROCHLORIDE [Concomitant]
     Indication: PRODUCT USED FOR UNKNOWN INDICATION
     Route: 065
     Dates: start: 20060101

REACTIONS (2)
  - PULMONARY EMBOLISM [None]
  - DEMENTIA [None]
